FAERS Safety Report 7938950-1 (Version None)
Quarter: 2011Q4

REPORT INFORMATION
  Report Type: 
  Country: None (occurrence: None)
  Receive Date: 20111124
  Receipt Date: 20111122
  Transmission Date: 20120403
  Serious: Yes (Other)
  Sender: FDA-Public Use
  Company Number: US-PFIZER INC-2011254831

PATIENT
  Age: 74 Year
  Sex: Female

DRUGS (5)
  1. GLIZIDE [Concomitant]
     Indication: DIABETES MELLITUS
  2. ZOCOR [Concomitant]
     Indication: BLOOD CHOLESTEROL ABNORMAL
  3. METFORMIN [Concomitant]
     Dosage: UNK
     Route: 048
  4. LYRICA [Suspect]
     Indication: DIABETIC NEUROPATHY
     Dosage: 50 MG, 3X/DAY
     Dates: start: 20100624
  5. LYRICA [Suspect]
     Dosage: 100 MG, 3X/DAY
     Dates: end: 20100727

REACTIONS (1)
  - HALLUCINATION [None]
